FAERS Safety Report 4776198-2 (Version None)
Quarter: 2005Q3

REPORT INFORMATION
  Report Type: 
  Country: None (occurrence: None)
  Receive Date: 20050914
  Receipt Date: 20050302
  Transmission Date: 20060218
  Serious: Yes (Hospitalization)
  Sender: FDA-Public Use
  Company Number: 163-20785-05030065

PATIENT
  Age: 69 Year
  Sex: Female
  Weight: 66.6788 kg

DRUGS (2)
  1. THALOMID [Suspect]
     Indication: BREAST CANCER METASTATIC
     Dosage: 100MG DAILY, ORAL
     Route: 048
     Dates: start: 20050211, end: 20050226
  2. XELODA [Suspect]
     Indication: BREAST CANCER METASTATIC
     Dosage: 3500 MG DAILY ORAL
     Route: 048
     Dates: start: 20050211, end: 20050225

REACTIONS (3)
  - DIARRHOEA [None]
  - NAUSEA [None]
  - VOMITING [None]
